FAERS Safety Report 6311381-6 (Version None)
Quarter: 2009Q3

REPORT INFORMATION
  Report Type: 
  Country: None (occurrence: None)
  Receive Date: 20090817
  Receipt Date: 20090807
  Transmission Date: 20100115
  Serious: Yes (Hospitalization)
  Sender: FDA-Public Use
  Company Number: PHHY2009SE33024

PATIENT
  Sex: Female

DRUGS (1)
  1. TEGRETOL [Suspect]
     Dosage: UNK
     Dates: end: 20090621

REACTIONS (3)
  - FEELING HOT [None]
  - PALPITATIONS [None]
  - RASH [None]
